FAERS Safety Report 9337430 (Version 1)
Quarter: 2013Q2

REPORT INFORMATION
  Report Type: Report from Study
  Country: CH (occurrence: CH)
  Receive Date: 20130607
  Receipt Date: 20130607
  Transmission Date: 20140414
  Serious: Yes (Hospitalization)
  Sender: FDA-Public Use
  Company Number: CH-ELI_LILLY_AND_COMPANY-CH201305009850

PATIENT
  Age: 55 Year
  Sex: Female
  Weight: 76.1 kg

DRUGS (4)
  1. PEMETREXED [Suspect]
     Indication: NON-SMALL CELL LUNG CANCER
     Dosage: 500 UG/M2, UNK
     Route: 042
     Dates: start: 20130118
  2. OTHER PHARMA COMPANY INV DRUG [Suspect]
     Indication: NON-SMALL CELL LUNG CANCER
     Dosage: 1920 MICROGRAMS DAILY; 12 VACCINATIONS ON DAY 1,8 AND 15
     Route: 023
     Dates: start: 20130415
  3. RADIATION [Suspect]
     Indication: NON-SMALL CELL LUNG CANCER
     Dosage: 5 GY
     Dates: start: 20130423
  4. MIRTAZAPIN [Concomitant]
     Indication: DEPRESSION

REACTIONS (1)
  - Dysphagia [Recovered/Resolved]
